FAERS Safety Report 10657600 (Version 7)
Quarter: 2015Q2

REPORT INFORMATION
  Report Type: Spontaneous
  Country: US (occurrence: None)
  Receive Date: 20141215
  Receipt Date: 20150420
  Transmission Date: 20150821
  Serious: Yes (Other)
  Sender: FDA-Public Use
  Company Number: ADR-2014-02326

PATIENT
  Age: 39 Year
  Sex: Male

DRUGS (1)
  1. BACLOFEN INTRATHECAL [Suspect]
     Active Substance: BACLOFEN
     Indication: MUSCLE SPASTICITY
     Dosage: 110.12 MCG/DAY
     Dates: start: 20141014

REACTIONS (13)
  - Implant site infection [None]
  - Device failure [None]
  - Muscle spasticity [None]
  - Clonus [None]
  - Device infusion issue [None]
  - Implant site hypoaesthesia [None]
  - No therapeutic response [None]
  - Device material issue [None]
  - Device dislocation [None]
  - Musculoskeletal stiffness [None]
  - Device power source issue [None]
  - Activities of daily living impaired [None]
  - Device information output issue [None]

NARRATIVE: CASE EVENT DATE: 20141128
